FAERS Safety Report 4302490-1 (Version None)
Quarter: 2004Q1

REPORT INFORMATION
  Report Type: 
  Country: None (occurrence: None)
  Receive Date: 20040220
  Receipt Date: 20040206
  Transmission Date: 20041129
  Serious: Yes (Hospitalization)
  Sender: FDA-Public Use
  Company Number: 2004-FF-00057FF

PATIENT
  Age: 27 Year
  Sex: Male

DRUGS (3)
  1. VIRAMUNE [Suspect]
     Indication: HIV INFECTION
     Dosage: (, 1 IN 1 D) PO
     Route: 048
     Dates: start: 20031210, end: 20031223
  2. VIDEX (NR) [Concomitant]
  3. VIREAD (NR) [Concomitant]

REACTIONS (4)
  - GENERAL PHYSICAL HEALTH DETERIORATION [None]
  - HEADACHE [None]
  - PYREXIA [None]
  - RASH GENERALISED [None]
